FAERS Safety Report 16982794 (Version 2)
Quarter: 2019Q4

REPORT INFORMATION
  Report Type: Spontaneous
  Country: GB (occurrence: GB)
  Receive Date: 20191101
  Receipt Date: 20191216
  Transmission Date: 20200122
  Serious: Yes (Other)
  Sender: FDA-Public Use
  Company Number: GB-MYLANLABS-2019M1103417

PATIENT
  Age: 30 Year
  Sex: Male

DRUGS (7)
  1. OMACOR [Concomitant]
     Active Substance: OMEGA-3-ACID ETHYL ESTERS
     Dosage: UNK, BID
  2. LISDEXAMFETAMINE [Suspect]
     Active Substance: LISDEXAMFETAMINE
     Indication: PRODUCT USED FOR UNKNOWN INDICATION
     Dosage: 50 MILLIGRAM, AM
     Dates: start: 201910
  3. LISDEXAMFETAMINE [Suspect]
     Active Substance: LISDEXAMFETAMINE
     Dosage: 20 MILLIGRAM
     Dates: start: 201911
  4. CLOZARIL [Suspect]
     Active Substance: CLOZAPINE
     Dosage: 425 MILLIGRAM, PM
     Route: 048
     Dates: start: 20191205
  5. CLOZARIL [Suspect]
     Active Substance: CLOZAPINE
     Indication: SCHIZOPHRENIA
     Dosage: 450 MILLIGRAM
     Route: 048
     Dates: start: 20080204
  6. GABAPENTIN. [Concomitant]
     Active Substance: GABAPENTIN
     Dosage: 300 MILLIGRAM, TID
  7. SERTRALINE [Suspect]
     Active Substance: SERTRALINE HYDROCHLORIDE
     Indication: PRODUCT USED FOR UNKNOWN INDICATION
     Dosage: UNK
     Dates: start: 201910, end: 2019

REACTIONS (11)
  - Neutrophil count increased [Recovered/Resolved]
  - Malaise [Unknown]
  - Serotonin syndrome [Unknown]
  - Viral infection [Unknown]
  - White blood cell count increased [Recovering/Resolving]
  - Blood creatine phosphokinase increased [Recovered/Resolved]
  - Mean cell haemoglobin concentration decreased [Recovered/Resolved]
  - Platelet count increased [Recovered/Resolved]
  - Eosinophilia [Not Recovered/Not Resolved]
  - Red cell distribution width increased [Recovered/Resolved]
  - Basophil count increased [Not Recovered/Not Resolved]

NARRATIVE: CASE EVENT DATE: 20121204
